FAERS Safety Report 20738346 (Version 1)
Quarter: 2022Q2

REPORT INFORMATION
  Report Type: Report from Study
  Country: JP (occurrence: JP)
  Receive Date: 20220422
  Receipt Date: 20220422
  Transmission Date: 20220720
  Serious: Yes (Death, Other)
  Sender: FDA-Public Use
  Company Number: JP-JNJFOC-A-CH2018-173475

PATIENT
  Age: 74 Year
  Sex: Female

DRUGS (10)
  1. TRACLEER [Suspect]
     Active Substance: BOSENTAN
     Indication: Scleroderma associated digital ulcer
     Dosage: 125 MG, BID
     Route: 048
     Dates: start: 20171109, end: 20171220
  2. TRACLEER [Suspect]
     Active Substance: BOSENTAN
     Dosage: 62.5 MG, QD
     Route: 048
     Dates: start: 20170914, end: 20171011
  3. TRACLEER [Suspect]
     Active Substance: BOSENTAN
     Dosage: 62.5 MG, BID
     Route: 048
     Dates: start: 20171012, end: 20171108
  4. TRACLEER [Suspect]
     Active Substance: BOSENTAN
     Dosage: 62.5 MG, BID
     Route: 048
     Dates: start: 20171221
  5. TRACLEER [Suspect]
     Active Substance: BOSENTAN
     Dosage: 62.5 MG, QD
     Route: 048
     Dates: end: 20180214
  6. ALPROSTADIL [Concomitant]
     Active Substance: ALPROSTADIL
     Indication: Systemic scleroderma
     Route: 042
     Dates: start: 20170914, end: 20180115
  7. LANSOPRAZOLE [Concomitant]
     Active Substance: LANSOPRAZOLE
     Indication: Systemic scleroderma
     Route: 048
     Dates: start: 20170914
  8. PREDNISOLONE [Concomitant]
     Active Substance: PREDNISOLONE
     Indication: Systemic scleroderma
     Route: 048
     Dates: start: 20170914
  9. TOCOPHERYL NICOTINATE, D-.ALPHA. [Concomitant]
     Active Substance: TOCOPHERYL NICOTINATE, D-.ALPHA.
     Indication: Systemic scleroderma
     Route: 048
     Dates: start: 20170914
  10. ANTIADRENAL PREPARATIONS [Concomitant]
     Indication: Interstitial lung disease
     Route: 065

REACTIONS (6)
  - Cardiac failure [Fatal]
  - Interstitial lung disease [Unknown]
  - Liver disorder [Recovered/Resolved]
  - Alanine aminotransferase increased [Recovered/Resolved]
  - Aspartate aminotransferase increased [Recovered/Resolved]
  - Gamma-glutamyltransferase increased [Recovered/Resolved]

NARRATIVE: CASE EVENT DATE: 20171221
